FAERS Safety Report 23593401 (Version 2)
Quarter: 2024Q1

REPORT INFORMATION
  Report Type: Spontaneous
  Country: FR (occurrence: FR)
  Receive Date: 20240304
  Receipt Date: 20240318
  Transmission Date: 20240410
  Serious: Yes (Hospitalization, Other)
  Sender: FDA-Public Use
  Company Number: FR-SA-SAC20240228000039

PATIENT

DRUGS (1)
  1. ALDURAZYME [Suspect]
     Active Substance: LARONIDASE
     Indication: Mucopolysaccharidosis I
     Dosage: 100 IU/KG, QW
     Route: 041
     Dates: start: 20240214

REACTIONS (4)
  - Pneumonia viral [Unknown]
  - Lower respiratory tract congestion [Unknown]
  - Oxygen saturation decreased [Unknown]
  - Ear, nose and throat disorder [Unknown]

NARRATIVE: CASE EVENT DATE: 20240201
